FAERS Safety Report 16006200 (Version 4)
Quarter: 2019Q3

REPORT INFORMATION
  Report Type: Spontaneous
  Country: US (occurrence: US)
  Receive Date: 20190226
  Receipt Date: 20190927
  Transmission Date: 20191004
  Serious: Yes (Other)
  Sender: FDA-Public Use
  Company Number: US-PFIZER INC-2019082584

PATIENT
  Age: 67 Year
  Sex: Female
  Weight: 48.73 kg

DRUGS (19)
  1. ALPRAZOLAM. [Concomitant]
     Active Substance: ALPRAZOLAM
     Indication: ANXIETY DISORDER
  2. MAGNESIUM OXIDE. [Concomitant]
     Active Substance: MAGNESIUM OXIDE
     Indication: ASTHMA
     Dosage: 500 MG, DAILY
  3. SYMBICORT [Concomitant]
     Active Substance: BUDESONIDE\FORMOTEROL FUMARATE DIHYDRATE
     Indication: CHRONIC OBSTRUCTIVE PULMONARY DISEASE
     Dosage: 2 DF, 2X/DAY(150/4.5 2 PUFFS IN THE MORNING AND AT BEDTIME)
  4. SPIRIVA [Concomitant]
     Active Substance: TIOTROPIUM BROMIDE MONOHYDRATE
     Indication: CHRONIC OBSTRUCTIVE PULMONARY DISEASE
     Dosage: 5 UG, 1X/DAY (2.5MCG PER INHALATION, 2 INHALATIONS DAILY IN THE MORNING)
     Route: 055
  5. PREDNISONE. [Concomitant]
     Active Substance: PREDNISONE
     Indication: ASTHMA
  6. ALPRAZOLAM. [Concomitant]
     Active Substance: ALPRAZOLAM
     Indication: POST-TRAUMATIC STRESS DISORDER
     Dosage: 1 MG, 2X/DAY
  7. PSYLLIUM [PLANTAGO AFRA] [Concomitant]
     Active Substance: PLANTAGO AFRA SEED
     Indication: ASTHMA
     Dosage: 200 MG, DAILY
  8. ACIDOPHILUS [Concomitant]
     Active Substance: LACTOBACILLUS ACIDOPHILUS
     Indication: GASTROOESOPHAGEAL REFLUX DISEASE
     Dosage: UNK, DAILY (DOSAGE: 100,000,000)
  9. SYMBICORT [Concomitant]
     Active Substance: BUDESONIDE\FORMOTEROL FUMARATE DIHYDRATE
     Indication: ASTHMA
  10. SPIRIVA [Concomitant]
     Active Substance: TIOTROPIUM BROMIDE MONOHYDRATE
     Indication: ASTHMA
  11. LEVOTHYROXINE. [Concomitant]
     Active Substance: LEVOTHYROXINE
     Indication: ASTHMA
     Dosage: 25 UG, DAILY
     Dates: start: 2015
  12. COENZYME Q10 [Concomitant]
     Active Substance: UBIDECARENONE
     Indication: MYOCARDIAL NECROSIS MARKER
     Dosage: 30 MG, DAILY
  13. PSYLLIUM [PLANTAGO AFRA] [Concomitant]
     Active Substance: PLANTAGO AFRA SEED
     Indication: CHRONIC OBSTRUCTIVE PULMONARY DISEASE
  14. VFEND [Suspect]
     Active Substance: VORICONAZOLE
     Indication: ASPERGILLUS INFECTION
     Dosage: 200 MG, 2X/DAY
     Route: 048
     Dates: start: 201902, end: 201904
  15. ALBUTEROL [SALBUTAMOL] [Concomitant]
     Active Substance: ALBUTEROL
     Indication: ASTHMA
     Dosage: 180 UG, AS NEEDED (90MCG/INHALATION 2 PUFFS EVERY 4 HOURS AS NEEDED)
     Route: 055
  16. OMEGA 3 [FISH OIL] [Concomitant]
     Active Substance: FISH OIL
     Indication: ARRHYTHMIA
     Dosage: UNK
  17. PREDNISONE. [Concomitant]
     Active Substance: PREDNISONE
     Indication: CHRONIC OBSTRUCTIVE PULMONARY DISEASE
     Dosage: 20 MG, DAILY
  18. MAGNESIUM OXIDE. [Concomitant]
     Active Substance: MAGNESIUM OXIDE
     Indication: CHRONIC OBSTRUCTIVE PULMONARY DISEASE
  19. PRILOSEC [Concomitant]
     Active Substance: OMEPRAZOLE MAGNESIUM
     Indication: GASTROOESOPHAGEAL REFLUX DISEASE
     Dosage: 40 MG, DAILY

REACTIONS (7)
  - Drug interaction [Recovered/Resolved]
  - Gait disturbance [Unknown]
  - Malaise [Unknown]
  - Feeling abnormal [Unknown]
  - Laboratory test abnormal [Recovered/Resolved]
  - Aspergillus infection [Unknown]
  - Asthenia [Unknown]

NARRATIVE: CASE EVENT DATE: 2019
